FAERS Safety Report 5446090-9 (Version None)
Quarter: 2007Q3

REPORT INFORMATION
  Report Type: 
  Country: None (occurrence: None)
  Receive Date: 20070904
  Receipt Date: 20070821
  Transmission Date: 20080115
  Serious: Yes (Life-Threatening)
  Sender: FDA-Public Use
  Company Number: 100#01#2007-03159

PATIENT
  Age: 70 Year

DRUGS (2)
  1. CALCIUM FOLINATE (CALCIUM FOLINATE) (CALCIUM FOLINATE) [Suspect]
     Indication: COLON CANCER
     Dosage: 30MG/5 DAYS INTRAVENOUS
     Route: 042
     Dates: start: 20070806, end: 20070810
  2. 5-FLUOROURACIL (FLOROURACIL) [Concomitant]

REACTIONS (5)
  - APHTHOUS STOMATITIS [None]
  - DIARRHOEA [None]
  - LEUKOPENIA [None]
  - PYREXIA [None]
  - SKIN HYPERPIGMENTATION [None]
